FAERS Safety Report 7657286-X (Version None)
Quarter: 2011Q3

REPORT INFORMATION
  Report Type: 
  Country: None (occurrence: None)
  Receive Date: 20110804
  Receipt Date: 20110727
  Transmission Date: 20111222
  Serious: Yes (Hospitalization)
  Sender: FDA-Public Use
  Company Number: PHHO2011FR12841

PATIENT
  Sex: Male
  Weight: 47.8 kg

DRUGS (3)
  1. NEORAL [Suspect]
     Indication: RENAL TRANSPLANT
     Dosage: 200 MG, UNK
     Route: 048
     Dates: start: 20110514
  2. PREDNISONE [Concomitant]
     Indication: RENAL TRANSPLANT
     Dosage: 5 MG, UNK
     Route: 048
     Dates: start: 20110513
  3. CELLCEPT [Concomitant]
     Indication: RENAL TRANSPLANT
     Dosage: 3.5 G, UNK
     Route: 048
     Dates: start: 20110513

REACTIONS (2)
  - HYPERPARATHYROIDISM [None]
  - RENAL FAILURE ACUTE [None]
